FAERS Safety Report 6040982-8 (Version None)
Quarter: 2009Q1

REPORT INFORMATION
  Report Type: 
  Country: None (occurrence: None)
  Receive Date: 20090116
  Receipt Date: 20080717
  Transmission Date: 20090719
  Serious: No
  Sender: FDA-Public Use
  Company Number: US-BRISTOL-MYERS SQUIBB COMPANY-14266662

PATIENT
  Age: 37 Year
  Sex: Female

DRUGS (3)
  1. ABILIFY [Suspect]
     Dates: start: 20080101
  2. CYMBALTA [Concomitant]
  3. AMBIEN [Concomitant]

REACTIONS (2)
  - DYSPNOEA [None]
  - SINUSITIS [None]
